FAERS Safety Report 23341466 (Version 2)
Quarter: 2024Q1

REPORT INFORMATION
  Report Type: Spontaneous
  Country: JP (occurrence: JP)
  Receive Date: 20231227
  Receipt Date: 20240110
  Transmission Date: 20240410
  Serious: Yes (Other)
  Sender: FDA-Public Use
  Company Number: JP-ASTELLAS-2023JP014182

PATIENT
  Sex: Male
  Weight: 1.098 kg

DRUGS (3)
  1. TACROLIMUS [Suspect]
     Active Substance: TACROLIMUS
     Indication: Immunomodulatory therapy
     Dosage: 2 MG/DAY, UNKNOWN FREQ.
     Route: 064
  2. BETAMETHASONE [Concomitant]
     Active Substance: BETAMETHASONE\BETAMETHASONE DIPROPIONATE
     Indication: Product used for unknown indication
     Dosage: 12 MG, UNKNOWN FREQ. FOR 2 DAYS
     Route: 064
  3. MAGNESIUM SULFATE [Concomitant]
     Active Substance: MAGNESIUM SULFATE\MAGNESIUM SULFATE HEPTAHYDRATE
     Indication: Product used for unknown indication
     Dosage: UNK UNK, UNKNOWN FREQ.
     Route: 064

REACTIONS (6)
  - Tachycardia foetal [Unknown]
  - Premature baby [Unknown]
  - Low birth weight baby [Unknown]
  - Sepsis neonatal [Unknown]
  - Bradycardia [Unknown]
  - Foetal exposure during pregnancy [Unknown]
